FAERS Safety Report 11994094 (Version 1)
Quarter: 2016Q1

REPORT INFORMATION
  Report Type: Spontaneous
  Country: BR (occurrence: BR)
  Receive Date: 20160203
  Receipt Date: 20160203
  Transmission Date: 20160526
  Serious: Yes (Other)
  Sender: FDA-Public Use
  Company Number: BR-PFIZER INC-2016048542

PATIENT
  Sex: Female

DRUGS (1)
  1. CELEBRA [Suspect]
     Active Substance: CELECOXIB
     Indication: INFLAMMATION
     Dosage: UNK, 2X/DAY (EVERY 12 HOURS)

REACTIONS (6)
  - Dysentery [Unknown]
  - Malaise [Unknown]
  - Vomiting [Recovered/Resolved]
  - Dizziness [Unknown]
  - Feeling abnormal [Unknown]
  - Blood pressure decreased [Unknown]
